FAERS Safety Report 13550986 (Version 2)
Quarter: 2017Q2

REPORT INFORMATION
  Report Type: Spontaneous
  Country: US (occurrence: US)
  Receive Date: 20170516
  Receipt Date: 20170606
  Transmission Date: 20170830
  Serious: No
  Sender: FDA-Public Use
  Company Number: US-PFIZER INC-2017209233

PATIENT
  Sex: Female

DRUGS (1)
  1. XELJANZ [Suspect]
     Active Substance: TOFACITINIB CITRATE
     Dosage: 5 MG, UNK

REACTIONS (20)
  - Dry mouth [Unknown]
  - Crepitations [Unknown]
  - Urinary incontinence [Unknown]
  - Myalgia [Unknown]
  - Arthralgia [Unknown]
  - Arthritis [Recovering/Resolving]
  - Burning sensation [Recovering/Resolving]
  - Osteoarthritis [Unknown]
  - Dry eye [Unknown]
  - Joint stiffness [Unknown]
  - Blood creatinine increased [Unknown]
  - Alopecia [Unknown]
  - Temperature intolerance [Unknown]
  - Nodule [Unknown]
  - Pain [Recovering/Resolving]
  - Musculoskeletal stiffness [Unknown]
  - Fatigue [Unknown]
  - X-ray abnormal [Unknown]
  - Increased tendency to bruise [Unknown]
  - Anaemia [Unknown]
